FAERS Safety Report 23193786 (Version 1)
Quarter: 2023Q4

REPORT INFORMATION
  Report Type: Report from Study
  Country: US (occurrence: US)
  Receive Date: 20231116
  Receipt Date: 20231116
  Transmission Date: 20240109
  Serious: Yes (Hospitalization, Other)
  Sender: FDA-Public Use
  Company Number: US-ABBVIE-5412411

PATIENT
  Sex: Female
  Weight: 63 kg

DRUGS (4)
  1. HUMIRA [Suspect]
     Active Substance: ADALIMUMAB
     Indication: Colitis ulcerative
     Dosage: FORM STRENGTH: 40 MILLIGRAM?LAST ADMIN DATE:2023
     Route: 058
     Dates: start: 20230407
  2. HUMIRA [Suspect]
     Active Substance: ADALIMUMAB
     Dosage: LAST ADMINISTRATION DATE: 2023
     Route: 058
     Dates: start: 202302
  3. HUMIRA [Suspect]
     Active Substance: ADALIMUMAB
     Dosage: FORM STRENGTH: 40 MILLIGRAM?LAST ADMIN DATE:2023
     Route: 058
     Dates: start: 202306
  4. HUMIRA [Suspect]
     Active Substance: ADALIMUMAB
     Dosage: LAST ADMIN DATE:2023
     Route: 058

REACTIONS (12)
  - Lupus-like syndrome [Unknown]
  - Obstruction [Unknown]
  - Musculoskeletal pain [Unknown]
  - Dizziness [Unknown]
  - Abdominal distension [Unknown]
  - Arthralgia [Unknown]
  - Nausea [Unknown]
  - Lymphadenopathy [Unknown]
  - Myalgia [Unknown]
  - Feeling abnormal [Unknown]
  - Pain [Unknown]
  - Inflammation [Unknown]

NARRATIVE: CASE EVENT DATE: 20230101
